FAERS Safety Report 23765068 (Version 1)
Quarter: 2024Q2

REPORT INFORMATION
  Report Type: Spontaneous
  Country: US (occurrence: US)
  Receive Date: 20240420
  Receipt Date: 20240420
  Transmission Date: 20240717
  Serious: No
  Sender: FDA-Public Use
  Company Number: US-TEVA-2022-US-2037150

PATIENT
  Age: 55 Year
  Sex: Female

DRUGS (2)
  1. FREMANEZUMAB-VFRM [Suspect]
     Active Substance: FREMANEZUMAB-VFRM
     Indication: Product used for unknown indication
     Dosage: DOSAGE TEXT: 225 MG / 1.5 ML
     Route: 065
  2. FREMANEZUMAB-VFRM [Suspect]
     Active Substance: FREMANEZUMAB-VFRM
     Dosage: STRENGTH: 225 MG / 1.5 ML
     Route: 065

REACTIONS (4)
  - Device delivery system issue [Unknown]
  - Wrong technique in device usage process [Unknown]
  - Accidental exposure to product [Unknown]
  - Product dose omission issue [Unknown]
